FAERS Safety Report 5778049-6 (Version None)
Quarter: 2008Q2

REPORT INFORMATION
  Report Type: 
  Country: None (occurrence: None)
  Receive Date: 20080619
  Receipt Date: 20080609
  Transmission Date: 20081010
  Serious: Yes (Other)
  Sender: FDA-Public Use
  Company Number: GB-JNJFOC-20080305000

PATIENT
  Sex: Male
  Weight: 55.9 kg

DRUGS (4)
  1. CONCERTA [Suspect]
     Route: 048
  2. CONCERTA [Suspect]
     Route: 048
  3. CONCERTA [Suspect]
     Indication: ATTENTION DEFICIT/HYPERACTIVITY DISORDER
     Route: 048
  4. CETIRIZINE HCL [Concomitant]
     Indication: SEASONAL ALLERGY
     Route: 065

REACTIONS (8)
  - AGGRESSION [None]
  - AMNESIA [None]
  - CHEST PAIN [None]
  - DEPRESSION [None]
  - DISTURBANCE IN SOCIAL BEHAVIOUR [None]
  - MUSCLE SPASMS [None]
  - SOCIAL AVOIDANT BEHAVIOUR [None]
  - URINARY TRACT INFECTION [None]
